FAERS Safety Report 16913444 (Version 1)
Quarter: 2019Q4

REPORT INFORMATION
  Report Type: Spontaneous
  Country: US (occurrence: US)
  Receive Date: 20191011
  Receipt Date: 20191011
  Transmission Date: 20200122
  Serious: Yes (Other)
  Sender: FDA-Public Use
  Company Number: None

PATIENT
  Age: 46 Year
  Sex: Female
  Weight: 69.75 kg

DRUGS (1)
  1. AJOVY [Suspect]
     Active Substance: FREMANEZUMAB-VFRM
     Indication: MIGRAINE
     Dosage: ?          QUANTITY:1 INJECTION(S);OTHER FREQUENCY:MONTHLY INJECTION;?
     Route: 058
     Dates: start: 20190201, end: 20190815

REACTIONS (10)
  - Dry eye [None]
  - Alopecia [None]
  - Constipation [None]
  - Dry skin [None]
  - Dry mouth [None]
  - Intestinal obstruction [None]
  - Product dose omission [None]
  - Therapy cessation [None]
  - Onychoclasis [None]
  - Hypothyroidism [None]

NARRATIVE: CASE EVENT DATE: 20190301
